FAERS Safety Report 12053804 (Version 1)
Quarter: 2016Q1

REPORT INFORMATION
  Report Type: Spontaneous
  Country: US (occurrence: US)
  Receive Date: 20160209
  Receipt Date: 20160209
  Transmission Date: 20160526
  Serious: No
  Sender: FDA-Public Use
  Company Number: US-SA-2015SA180648

PATIENT
  Age: 64 Year
  Sex: Male
  Weight: 90.26 kg

DRUGS (15)
  1. ALIROCUMAB [Concomitant]
     Active Substance: ALIROCUMAB
     Dates: start: 20150918, end: 20151101
  2. CHONDROITIN SULFATE (BOVINE)\GLUCOSAMINE SULFATE [Concomitant]
     Active Substance: CHONDROITIN SULFATE (BOVINE)\GLUCOSAMINE SULFATE
  3. ASPIRIN. [Concomitant]
     Active Substance: ASPIRIN
  4. VITAMIN D [Concomitant]
     Active Substance: CHOLECALCIFEROL
  5. VITAMIN C [Concomitant]
     Active Substance: ASCORBIC ACID
  6. MULTIVITAMINS [Concomitant]
     Active Substance: VITAMINS
  7. PRALUENT [Suspect]
     Active Substance: ALIROCUMAB
     Indication: BLOOD CHOLESTEROL INCREASED
     Route: 058
     Dates: start: 20150918, end: 20151101
  8. ACARBOSE. [Concomitant]
     Active Substance: ACARBOSE
  9. LASIX [Concomitant]
     Active Substance: FUROSEMIDE
  10. K-DUR [Concomitant]
     Active Substance: POTASSIUM CHLORIDE
  11. METFORMIN [Concomitant]
     Active Substance: METFORMIN HYDROCHLORIDE
  12. PLAVIX [Concomitant]
     Active Substance: CLOPIDOGREL BISULFATE
  13. CARVEDILOL. [Concomitant]
     Active Substance: CARVEDILOL
  14. FISH OIL [Concomitant]
     Active Substance: FISH OIL
  15. EVENING PRIMROSE OIL [Concomitant]
     Active Substance: EVENING PRIMROSE OIL

REACTIONS (4)
  - Blood triglycerides increased [Unknown]
  - Blood cholesterol increased [Unknown]
  - Blood glucose increased [Unknown]
  - Low density lipoprotein increased [Unknown]

NARRATIVE: CASE EVENT DATE: 20150920
